FAERS Safety Report 8941897 (Version 2)
Quarter: 2012Q4

REPORT INFORMATION
  Report Type: 
  Country: US (occurrence: US)
  Receive Date: 20121203
  Receipt Date: 20121206
  Transmission Date: 20130627
  Serious: Yes (Other)
  Sender: FDA-Public Use
  Company Number: US-PFIZER INC-2012302095

PATIENT
  Age: 47 Year
  Sex: Female
  Weight: 45.35 kg

DRUGS (2)
  1. LYRICA [Suspect]
     Indication: NERVE PAIN
     Dosage: 200 mg, 3x/day
     Route: 048
     Dates: start: 2012, end: 20121123
  2. CYMBALTA [Concomitant]
     Dosage: 60 mg, UNK

REACTIONS (7)
  - Gait disturbance [Unknown]
  - Activities of daily living impaired [Unknown]
  - Bedridden [Unknown]
  - Movement disorder [Unknown]
  - Weight decreased [Unknown]
  - Insomnia [Unknown]
  - Hypophagia [Unknown]
